FAERS Safety Report 19898141 (Version 1)
Quarter: 2021Q3

REPORT INFORMATION
  Report Type: Spontaneous
  Country: CN (occurrence: CN)
  Receive Date: 20210929
  Receipt Date: 20210929
  Transmission Date: 20211014
  Serious: Yes (Other)
  Sender: FDA-Public Use
  Company Number: CN-FRESENIUS KABI-FK202110368

PATIENT
  Age: 55 Year
  Sex: Male
  Weight: 37.5 kg

DRUGS (1)
  1. LIPOVENOES MCT 10% [Suspect]
     Active Substance: EGG PHOSPHOLIPIDS\GLYCERIN\MEDIUM-CHAIN TRIGLYCERIDES\SOYBEAN OIL
     Indication: PARENTERAL NUTRITION
     Route: 041
     Dates: start: 20210908, end: 20210908

REACTIONS (4)
  - Chills [Recovered/Resolved]
  - Temperature intolerance [Recovered/Resolved]
  - Infusion related reaction [Recovered/Resolved]
  - Infusion site pain [Recovered/Resolved]

NARRATIVE: CASE EVENT DATE: 20210908
